FAERS Safety Report 10913250 (Version 1)
Quarter: 2015Q1

REPORT INFORMATION
  Report Type: Spontaneous
  Country: US (occurrence: None)
  Receive Date: 20150309
  Receipt Date: 20150309
  Transmission Date: 20150721
  Serious: No
  Sender: FDA-Public Use
  Company Number: US-20140006

PATIENT
  Sex: Male

DRUGS (1)
  1. DOTAREM [Suspect]
     Active Substance: GADOTERATE MEGLUMINE
     Indication: NUCLEAR MAGNETIC RESONANCE IMAGING
     Dosage: 2 DOSES OF 0.1 MMOL/KG
     Dates: start: 20140502, end: 20140502

REACTIONS (3)
  - Flushing [None]
  - Urticaria [None]
  - Off label use [None]

NARRATIVE: CASE EVENT DATE: 20140502
